FAERS Safety Report 15465901 (Version 1)
Quarter: 2018Q4

REPORT INFORMATION
  Report Type: Spontaneous
  Country: US (occurrence: US)
  Receive Date: 20181004
  Receipt Date: 20181004
  Transmission Date: 20190204
  Serious: No
  Sender: FDA-Public Use
  Company Number: US-FOUNDATIONCONSUMERHC-2018-US-012682

PATIENT
  Age: 42 Year
  Sex: Female
  Weight: 72.58 kg

DRUGS (3)
  1. PLAN B ONE-STEP [Suspect]
     Active Substance: LEVONORGESTREL
     Indication: POST COITAL CONTRACEPTION
     Dosage: 1.5 MG ONCE WEEKLY FOR 3 TOTAL DOSES AFTER 3 SEPERATE INCIDENTS OF INTERCOURSE
     Route: 048
     Dates: start: 20180615, end: 20180629
  2. SHAROBEL [Concomitant]
     Active Substance: NORETHINDRONE
     Dates: start: 201801
  3. METFORMIN [Concomitant]
     Active Substance: METFORMIN HYDROCHLORIDE

REACTIONS (2)
  - Menstruation delayed [Unknown]
  - Vaginal haemorrhage [Recovered/Resolved]

NARRATIVE: CASE EVENT DATE: 20180628
